FAERS Safety Report 17705339 (Version 1)
Quarter: 2020Q2

REPORT INFORMATION
  Report Type: Report from Study
  Country: CA (occurrence: CA)
  Receive Date: 20200424
  Receipt Date: 20200424
  Transmission Date: 20200714
  Serious: Yes (Other)
  Sender: FDA-Public Use
  Company Number: CA-ROCHE-2587983

PATIENT

DRUGS (2)
  1. DORNASE ALFA. [Suspect]
     Active Substance: DORNASE ALFA
     Indication: INFECTIOUS PLEURAL EFFUSION
     Dosage: 5 MG (DISSOLVED IN 20 ML OF NORMAL SALINE IF THE PARTICIPANT WEIGHED 10 KG OR MORE OR IN 10ML OF NOR
     Route: 034
  2. ALTEPLASE. [Suspect]
     Active Substance: ALTEPLASE
     Indication: INFECTIOUS PLEURAL EFFUSION
     Dosage: 4 MG (DISSOLVED IN 20 ML OF NORMAL SALINE IF THE PARTICIPANT WEIGHED 10 KG OR MORE OR IN 10ML OF NOR
     Route: 034

REACTIONS (6)
  - Haemothorax [Unknown]
  - Haemorrhage [Unknown]
  - Haemoglobin decreased [Unknown]
  - Septic shock [Unknown]
  - Bronchopleural fistula [Unknown]
  - Infectious pleural effusion [Unknown]
